FAERS Safety Report 5693726-3 (Version None)
Quarter: 2008Q2

REPORT INFORMATION
  Report Type: 
  Country: None (occurrence: None)
  Receive Date: 20080403
  Receipt Date: 20080328
  Transmission Date: 20081010
  Serious: Yes (Other)
  Sender: FDA-Public Use
  Company Number: BR-ASTRAZENECA-2008UW06407

PATIENT
  Age: 47 Year
  Sex: Male
  Weight: 96 kg

DRUGS (2)
  1. ATACAND [Suspect]
     Indication: HYPERTENSION
     Route: 048
     Dates: start: 20050101
  2. ANGIPRESS [Concomitant]
     Indication: TACHYCARDIA
     Route: 048
     Dates: start: 20050101

REACTIONS (2)
  - BLOOD PRESSURE INCREASED [None]
  - TYPE 2 DIABETES MELLITUS [None]
